FAERS Safety Report 5793140-6 (Version None)
Quarter: 2008Q2

REPORT INFORMATION
  Report Type: 
  Country: None (occurrence: None)
  Receive Date: 20080627
  Receipt Date: 20080512
  Transmission Date: 20081010
  Serious: No
  Sender: FDA-Public Use
  Company Number: A0723198A

PATIENT
  Age: 72 Year
  Sex: Female
  Weight: 93.6 kg

DRUGS (11)
  1. FLOVENT [Suspect]
     Indication: ASTHMA
     Dosage: 1PUFF TWICE PER DAY
     Route: 055
     Dates: start: 20020101
  2. NASACORT [Concomitant]
     Dates: start: 20040315
  3. VERAPAMIL [Concomitant]
  4. LISINOPRIL [Concomitant]
  5. LIPITOR [Concomitant]
  6. CITALOPRAM HYDROBROMIDE [Concomitant]
  7. SEROQUEL [Concomitant]
  8. LUNESTA [Concomitant]
  9. MOUTHWASH [Concomitant]
  10. ATROVENT [Concomitant]
     Route: 055
     Dates: start: 20080125
  11. IPRATROPIUM BROMIDE [Concomitant]
     Route: 055

REACTIONS (3)
  - COUGH [None]
  - DRUG ADMINISTRATION ERROR [None]
  - PHARMACEUTICAL PRODUCT COMPLAINT [None]
